FAERS Safety Report 7949515-X (Version None)
Quarter: 2011Q4

REPORT INFORMATION
  Report Type: 
  Country: None (occurrence: None)
  Receive Date: 20111123
  Receipt Date: 20111110
  Transmission Date: 20120403
  Serious: Yes (Death, Hospitalization)
  Sender: FDA-Public Use
  Company Number: 2008AL012452

PATIENT
  Sex: Female
  Weight: 63.5036 kg

DRUGS (12)
  1. DIGOXIN [Suspect]
     Indication: HEART RATE IRREGULAR
     Dosage: 0.125 MG;QD;PO
     Route: 048
     Dates: start: 20080301, end: 20080323
  2. PLAVIX [Concomitant]
  3. PROPRANOLOL [Concomitant]
  4. CARDIZEM [Concomitant]
  5. BUMETANIDE [Concomitant]
  6. POTASSIUM CHLORIDE [Concomitant]
  7. ASPIRIN [Concomitant]
  8. DILTIAZEM HCL [Concomitant]
  9. HYDROCHLOROTHIAZIDE [Concomitant]
  10. PRAVACHOL [Concomitant]
  11. TOPROL-XL [Concomitant]
  12. NITROGLYCERIN [Concomitant]

REACTIONS (16)
  - SOCIAL AVOIDANT BEHAVIOUR [None]
  - PAIN [None]
  - EMOTIONAL DISORDER [None]
  - MULTIPLE INJURIES [None]
  - IMPAIRED WORK ABILITY [None]
  - DECREASED APPETITE [None]
  - PULMONARY OEDEMA [None]
  - NAUSEA [None]
  - ARTERIOSCLEROSIS CORONARY ARTERY [None]
  - ATRIAL FIBRILLATION [None]
  - ECONOMIC PROBLEM [None]
  - ABDOMINAL PAIN [None]
  - HEMIPARESIS [None]
  - CEREBRAL INFARCTION [None]
  - RENAL FAILURE [None]
  - CARDIAC FAILURE [None]
